FAERS Safety Report 6813783-8 (Version None)
Quarter: 2010Q3

REPORT INFORMATION
  Report Type: 
  Country: None (occurrence: None)
  Receive Date: 20100701
  Receipt Date: 20100621
  Transmission Date: 20110219
  Serious: Yes (Hospitalization, Other)
  Sender: FDA-Public Use
  Company Number: US-ABBOTT-10P-163-0653531-00

PATIENT
  Sex: Male

DRUGS (3)
  1. HUMIRA [Suspect]
     Indication: RHEUMATOID ARTHRITIS
     Dates: start: 20070901, end: 20090101
  2. METHOTREXATE [Concomitant]
     Indication: RHEUMATOID ARTHRITIS
     Dates: start: 20080901, end: 20090601
  3. METHOTREXATE [Concomitant]
     Dates: start: 20090606, end: 20091101

REACTIONS (6)
  - COUGH [None]
  - LYMPHADENOPATHY [None]
  - MYCOSIS FUNGOIDES [None]
  - PNEUMONIA [None]
  - PYREXIA [None]
  - RASH [None]
